FAERS Safety Report 15041802 (Version 1)
Quarter: 2018Q2

REPORT INFORMATION
  Report Type: Spontaneous
  Country: PE (occurrence: PE)
  Receive Date: 20180621
  Receipt Date: 20180621
  Transmission Date: 20180711
  Serious: Yes (Hospitalization)
  Sender: FDA-Public Use
  Company Number: PHHY2018PE022896

PATIENT
  Age: 12 Year
  Sex: Male
  Weight: 30 kg

DRUGS (3)
  1. METHYLPREDNISOLONE. [Concomitant]
     Active Substance: METHYLPREDNISOLONE
     Indication: PRODUCT USED FOR UNKNOWN INDICATION
     Dosage: UNK
     Route: 065
  2. PREDNISONE. [Concomitant]
     Active Substance: PREDNISONE
     Indication: PRODUCT USED FOR UNKNOWN INDICATION
     Route: 065
  3. BASILIXIMAB [Suspect]
     Active Substance: BASILIXIMAB
     Indication: PRODUCT USED FOR UNKNOWN INDICATION
     Dosage: UNK
     Route: 065

REACTIONS (20)
  - Dry mouth [Unknown]
  - Decreased appetite [Unknown]
  - Mouth ulceration [Unknown]
  - Drug resistance [Unknown]
  - Diarrhoea [Unknown]
  - Lymphopenia [Unknown]
  - Abdominal pain [Unknown]
  - Haemoglobin decreased [Unknown]
  - Lymphocyte count increased [Unknown]
  - Viral load increased [Unknown]
  - Heart rate increased [Unknown]
  - Neutropenia [Unknown]
  - Transaminases increased [Unknown]
  - White blood cell count decreased [Unknown]
  - Pyrexia [Unknown]
  - Bicytopenia [Unknown]
  - Platelet count decreased [Unknown]
  - Thrombocytopenia [Unknown]
  - Cytomegalovirus infection [Unknown]
  - Pancytopenia [Unknown]
